FAERS Safety Report 24107920 (Version 2)
Quarter: 2024Q3

REPORT INFORMATION
  Report Type: Report from Study
  Country: PA (occurrence: PA)
  Receive Date: 20240718
  Receipt Date: 20240808
  Transmission Date: 20241017
  Serious: Yes (Hospitalization)
  Sender: TAKEDA
  Company Number: PA-JNJFOC-20240733550

PATIENT
  Age: 74 Year
  Sex: Male
  Weight: 95 kg

DRUGS (2)
  1. BORTEZOMIB [Suspect]
     Active Substance: BORTEZOMIB
     Indication: Plasma cell myeloma refractory
     Dosage: UNK
     Route: 065
  2. DARZALEX [Suspect]
     Active Substance: DARATUMUMAB
     Indication: Plasma cell myeloma refractory
     Dosage: 16 MILLIGRAM/KILOGRAM, MONTHLY
     Route: 042
     Dates: start: 20231206

REACTIONS (1)
  - Hypercalcaemia of malignancy [Unknown]

NARRATIVE: CASE EVENT DATE: 20240710
